FAERS Safety Report 23389480 (Version 1)
Quarter: 2024Q1

REPORT INFORMATION
  Report Type: Report from Study
  Country: US (occurrence: US)
  Receive Date: 20240110
  Receipt Date: 20240110
  Transmission Date: 20240410
  Serious: Yes (Other)
  Sender: FDA-Public Use
  Company Number: US-ABBVIE-5579750

PATIENT
  Sex: Male

DRUGS (1)
  1. VENCLEXTA [Suspect]
     Active Substance: VENETOCLAX
     Indication: Myeloid leukaemia
     Dosage: FORM STRENGTH:10MG?TAKE TWO 10MG TABLETS BY MOUTH DAILY WITH ONE 50MG TABLET WITH FOOD AND WATER ...
     Route: 048

REACTIONS (1)
  - Transplant [Unknown]
